FAERS Safety Report 20835672 (Version 1)
Quarter: 2022Q2

REPORT INFORMATION
  Report Type: Spontaneous
  Country: US (occurrence: US)
  Receive Date: 20220516
  Receipt Date: 20220516
  Transmission Date: 20220721
  Serious: No
  Sender: FDA-Public Use
  Company Number: US-PFIZER INC-202101707044

PATIENT
  Age: 68 Year

DRUGS (3)
  1. DILANTIN [Suspect]
     Active Substance: PHENYTOIN
     Indication: Seizure
     Dosage: 100 MG, 4X/DAY
  2. DILANTIN [Suspect]
     Active Substance: PHENYTOIN
     Dosage: CUT BACK TO 3 TO 2
  3. DILANTIN [Suspect]
     Active Substance: PHENYTOIN
     Dosage: WENT BACK TO 4

REACTIONS (3)
  - Therapeutic product effect incomplete [Unknown]
  - Blood test abnormal [Unknown]
  - Intentional product use issue [Unknown]
